FAERS Safety Report 23259845 (Version 1)
Quarter: 2023Q4

REPORT INFORMATION
  Report Type: Spontaneous
  Country: US (occurrence: None)
  Receive Date: 20231204
  Receipt Date: 20231204
  Transmission Date: 20240110
  Serious: Yes (Other)
  Sender: FDA-Public Use
  Company Number: None

PATIENT
  Sex: Male

DRUGS (3)
  1. TERIFLUNOMIDE [Suspect]
     Active Substance: TERIFLUNOMIDE
     Dates: start: 20230411
  2. ERTAPENEM INJ 1GM [Concomitant]
  3. ROSUVASTATIN TAB 10MG [Concomitant]

REACTIONS (1)
  - Intervertebral disc operation [None]
